FAERS Safety Report 5154042-1 (Version None)
Quarter: 2006Q4

REPORT INFORMATION
  Report Type: 
  Country: None (occurrence: None)
  Receive Date: 20061120
  Receipt Date: 20061109
  Transmission Date: 20070319
  Serious: Yes (Hospitalization, Disabling, Congenital Anomaly)
  Sender: FDA-Public Use
  Company Number: FR-RB-004331-06

PATIENT
  Sex: Male
  Weight: 3.93 kg

DRUGS (4)
  1. SUBUTEX [Suspect]
     Indication: ELECTROLYTE SUBSTITUTION THERAPY
     Route: 064
     Dates: start: 20050921, end: 20060615
  2. EFFERALGAN CODEINE [Concomitant]
     Indication: HEADACHE
     Dosage: DOSAGE UNKNOWN.  MOTHER TOOK FOR TWO DAYS BEFORE BIRTH.
  3. IMOVANE [Concomitant]
     Indication: DRUG USE FOR UNKNOWN INDICATION
     Dosage: DOSAGE UNKNOWN
     Route: 064
  4. XANAX [Suspect]
     Indication: DRUG USE FOR UNKNOWN INDICATION
     Dosage: INTERMITTENTLY 4-5 MG QD
     Route: 064
     Dates: start: 20050921, end: 20060615

REACTIONS (13)
  - AGITATION NEONATAL [None]
  - CLEFT PALATE [None]
  - CONGENITAL HEARING DISORDER [None]
  - CONGENITAL JAW MALFORMATION [None]
  - DRUG EXPOSURE DURING PREGNANCY [None]
  - DRUG WITHDRAWAL SYNDROME NEONATAL [None]
  - HYPERTONIA NEONATAL [None]
  - MICROGNATHIA [None]
  - NEONATAL RESPIRATORY DISTRESS SYNDROME [None]
  - PARESIS [None]
  - PIERRE ROBIN SYNDROME [None]
  - PREGNANCY [None]
  - RETROGNATHIA [None]
